FAERS Safety Report 14721329 (Version 1)
Quarter: 2018Q1

REPORT INFORMATION
  Report Type: Spontaneous
  Country: US (occurrence: US)
  Receive Date: 20180331
  Receipt Date: 20180331
  Transmission Date: 20180509
  Serious: No
  Sender: FDA-Public Use
  Company Number: None

PATIENT
  Age: 56 Year
  Sex: Female
  Weight: 63 kg

DRUGS (6)
  1. METRONIDAZOLE. [Suspect]
     Active Substance: METRONIDAZOLE
     Indication: GIARDIASIS
     Dosage: ?          QUANTITY:45 TABLET(S);?
     Route: 048
     Dates: start: 20180301, end: 20180315
  2. NOVOLOG [Concomitant]
     Active Substance: INSULIN ASPART
  3. IPTRATROPIUM BROMIDE [Concomitant]
  4. GABAPENTIN. [Concomitant]
     Active Substance: GABAPENTIN
  5. TRACODONE [Concomitant]
  6. LOSARTAN POTASSIUM. [Concomitant]
     Active Substance: LOSARTAN POTASSIUM

REACTIONS (7)
  - Stress [None]
  - Product label issue [None]
  - Nephrolithiasis [None]
  - Back disorder [None]
  - Back pain [None]
  - Drug ineffective [None]
  - Oral herpes [None]

NARRATIVE: CASE EVENT DATE: 20180305
